FAERS Safety Report 22062312 (Version 1)
Quarter: 2023Q1

REPORT INFORMATION
  Report Type: Spontaneous
  Country: IT (occurrence: IT)
  Receive Date: 20230305
  Receipt Date: 20230305
  Transmission Date: 20230417
  Serious: Yes (Other)
  Sender: FDA-Public Use
  Company Number: IT-AUROBINDO-AUR-APL-2023-009634

PATIENT
  Age: 28 Year
  Sex: Female

DRUGS (7)
  1. PAROXETINE [Suspect]
     Active Substance: PAROXETINE
     Indication: Product used for unknown indication
     Dosage: 20 MILLIGRAM, ONCE A DAY
     Route: 065
  2. AMITRIPTYLINE\PERPHENAZINE [Concomitant]
     Active Substance: AMITRIPTYLINE\PERPHENAZINE
     Indication: Product used for unknown indication
     Dosage: UNK
     Route: 065
  3. CLOMIPRAMINE [Concomitant]
     Active Substance: CLOMIPRAMINE
     Indication: Product used for unknown indication
     Dosage: UNK
     Route: 042
  4. LITHIUM CARBONATE [Concomitant]
     Active Substance: LITHIUM CARBONATE
     Indication: Product used for unknown indication
     Dosage: UNK
     Route: 065
  5. ESKETAMINE [Concomitant]
     Active Substance: ESKETAMINE
     Indication: Product used for unknown indication
     Dosage: 56 MILLIGRAM,FIRST MONTH,TWICE A WEEK,INDUCTION
     Route: 045
  6. ESKETAMINE [Concomitant]
     Active Substance: ESKETAMINE
     Dosage: 56 MILLIGRAM,MAINTENANCE SECOND MONTH ONCE A WEEK
     Route: 045
  7. ESKETAMINE [Concomitant]
     Active Substance: ESKETAMINE
     Dosage: 56 MILLIGRAM,MAINTENANCE THIRD MONTH AND LONGER ONCE EVERY 2 WEEKS
     Route: 045

REACTIONS (1)
  - Suicidal ideation [Unknown]
